FAERS Safety Report 23653227 (Version 1)
Quarter: 2024Q1

REPORT INFORMATION
  Report Type: Report from Study
  Country: US (occurrence: US)
  Receive Date: 20240320
  Receipt Date: 20240320
  Transmission Date: 20240410
  Serious: Yes (Other)
  Sender: FDA-Public Use
  Company Number: US-TAKEDA-2024TUS022438

PATIENT
  Age: 60 Year
  Sex: Male

DRUGS (18)
  1. MARIBAVIR [Suspect]
     Active Substance: MARIBAVIR
     Indication: Cytomegalovirus infection
     Dosage: 400 MILLIGRAM, BID
     Route: 048
  2. PROVENTIL [Concomitant]
     Active Substance: ALBUTEROL
     Dosage: 2 DOSAGE FORM
  3. VENTOLIN [Concomitant]
     Active Substance: ALBUTEROL SULFATE
     Dosage: 2 DOSAGE FORM
  4. DUONEB [Concomitant]
     Active Substance: ALBUTEROL SULFATE\IPRATROPIUM BROMIDE
     Dosage: 3 MILLILITER
     Route: 065
  5. VITAMIN C [Concomitant]
     Active Substance: ASCORBIC ACID
     Dosage: 2 DOSAGE FORM, QD
     Route: 048
  6. ZITHROMAX [Concomitant]
     Active Substance: AZITHROMYCIN DIHYDRATE
     Dosage: 1 DOSAGE FORM, 3/WEEK
     Route: 048
  7. CALCIUM CITRATE\CHOLECALCIFEROL [Concomitant]
     Active Substance: CALCIUM CITRATE\CHOLECALCIFEROL
     Dosage: 2 DOSAGE FORM, BID
     Route: 048
  8. CELEXA [Concomitant]
     Active Substance: CITALOPRAM HYDROBROMIDE
     Dosage: 1 DOSAGE FORM, QD
     Route: 048
  9. ZORTRESS [Concomitant]
     Active Substance: EVEROLIMUS
     Dosage: UNK
  10. DOCONEXENT\ICOSAPENT [Concomitant]
     Active Substance: DOCONEXENT\ICOSAPENT
     Dosage: 2 DOSAGE FORM, QD
     Route: 048
  11. FOLIC ACID [Concomitant]
     Active Substance: FOLIC ACID
     Dosage: 1 DOSAGE FORM, QD
     Route: 048
  12. PRILOSEC [Concomitant]
     Active Substance: OMEPRAZOLE MAGNESIUM
     Dosage: 1 DOSAGE FORM, QD
     Route: 048
  13. PRAVACHOL [Concomitant]
     Active Substance: PRAVASTATIN SODIUM
     Dosage: 1 DOSAGE FORM, QD
     Route: 048
  14. PREDNISONE [Concomitant]
     Active Substance: PREDNISONE
     Dosage: 1 DOSAGE FORM, BID
     Route: 048
  15. VIAGRA [Concomitant]
     Active Substance: SILDENAFIL CITRATE
     Dosage: 1 DOSAGE FORM
     Route: 048
  16. BACTRIM DS [Concomitant]
     Active Substance: SULFAMETHOXAZOLE\TRIMETHOPRIM
     Dosage: 1 DOSAGE FORM, 3/WEEK
     Route: 048
  17. PROGRAF [Concomitant]
     Active Substance: TACROLIMUS
     Dosage: 1 DOSAGE FORM, BID
     Route: 048
  18. VALCYTE [Concomitant]
     Active Substance: VALGANCICLOVIR HYDROCHLORIDE
     Dosage: 1 DOSAGE FORM, BID
     Route: 048

REACTIONS (3)
  - Skin cancer [Unknown]
  - Dyspnoea exertional [Unknown]
  - Headache [Unknown]

NARRATIVE: CASE EVENT DATE: 20231201
